FAERS Safety Report 10146478 (Version 1)
Quarter: 2014Q2

REPORT INFORMATION
  Report Type: Spontaneous
  Country: US (occurrence: None)
  Receive Date: 20140430
  Receipt Date: 20140430
  Transmission Date: 20141212
  Serious: No
  Sender: FDA-Public Use
  Company Number: None

PATIENT
  Age: 3 Year
  Sex: Female
  Weight: 18.14 kg

DRUGS (1)
  1. MONTELUKAST [Suspect]
     Indication: MULTIPLE ALLERGIES
     Dosage: 1 TABLET, AT BEDTIME, TAKEN BY MOUTH
     Route: 048
     Dates: start: 20140412, end: 20140420

REACTIONS (5)
  - Agitation [None]
  - Hostility [None]
  - Irritability [None]
  - Impulsive behaviour [None]
  - Aggression [None]
